FAERS Safety Report 16000824 (Version 1)
Quarter: 2019Q1

REPORT INFORMATION
  Report Type: Spontaneous
  Country: US (occurrence: US)
  Receive Date: 20190130
  Receipt Date: 20190130
  Transmission Date: 20190418
  Serious: No
  Sender: FDA-Public Use
  Company Number: None

PATIENT
  Age: 12 Year
  Sex: Female
  Weight: 38.19 kg

DRUGS (2)
  1. ENBREL [Suspect]
     Active Substance: ETANERCEPT
     Indication: FAMILIAL COLD AUTOINFLAMMATORY SYNDROME
     Dosage: 72-96 HRS APART
     Route: 058
     Dates: start: 201801
  2. ENBREL [Suspect]
     Active Substance: ETANERCEPT
     Indication: APHTHOUS ULCER

REACTIONS (2)
  - Dehydration [None]
  - Pharyngitis streptococcal [None]
